FAERS Safety Report 21516595 (Version 1)
Quarter: 2022Q4

REPORT INFORMATION
  Report Type: Spontaneous
  Country: US (occurrence: None)
  Receive Date: 20221027
  Receipt Date: 20221027
  Transmission Date: 20230112
  Serious: Yes (Hospitalization)
  Sender: FDA-Public Use
  Company Number: None

PATIENT
  Age: 74 Year
  Sex: Male

DRUGS (13)
  1. MYCOPHENOLIC ACID [Suspect]
     Active Substance: MYCOPHENOLIC ACID
     Indication: Renal transplant
     Dosage: 500 MG ORAL??TAKE 1 TABLET BY MOUTH TWICE DAILY
     Route: 048
     Dates: start: 20220408
  2. MYCOPHENOLIC ACID [Suspect]
     Active Substance: MYCOPHENOLIC ACID
     Dosage: FREQUENCY : TWICE A DAY;?
     Route: 048
  3. ADDERALL [Concomitant]
     Active Substance: AMPHETAMINE ASPARTATE\AMPHETAMINE SULFATE\DEXTROAMPHETAMINE SACCHARATE\DEXTROAMPHETAMINE SULFATE
  4. ATORVASTATIN [Concomitant]
     Active Substance: ATORVASTATIN
  5. BACTRIM DS [Concomitant]
     Active Substance: SULFAMETHOXAZOLE\TRIMETHOPRIM
  6. LASIX [Concomitant]
     Active Substance: FUROSEMIDE
  7. PREDNISONE [Concomitant]
     Active Substance: PREDNISONE
  8. SIROLIMUS [Concomitant]
     Active Substance: SIROLIMUS
  9. SIROLIMUS [Concomitant]
     Active Substance: SIROLIMUS
  10. TACROLIMUS [Concomitant]
     Active Substance: TACROLIMUS
  11. TADALAFIL [Concomitant]
     Active Substance: TADALAFIL
  12. TAMSULOSIN [Concomitant]
     Active Substance: TAMSULOSIN
  13. VALGANCICLOV [Concomitant]

REACTIONS (1)
  - Urinary tract infection [None]

NARRATIVE: CASE EVENT DATE: 20221026
